FAERS Safety Report 19319029 (Version 1)
Quarter: 2021Q2

REPORT INFORMATION
  Report Type: Spontaneous
  Country: US (occurrence: US)
  Receive Date: 20210527
  Receipt Date: 20210527
  Transmission Date: 20210717
  Serious: Yes (Hospitalization, Other)
  Sender: FDA-Public Use
  Company Number: US-ASTRAZENECA-2021A464415

PATIENT
  Age: 28 Year
  Sex: Female

DRUGS (3)
  1. QUETIAPINE ER [Suspect]
     Active Substance: QUETIAPINE
     Indication: PSYCHOTIC DISORDER
     Route: 048
  2. QUETIAPINE ER [Interacting]
     Active Substance: QUETIAPINE
     Indication: PSYCHOTIC DISORDER
     Dosage: 400 MG
     Route: 048
  3. GRAPE [Interacting]
     Active Substance: CONCORD GRAPE\GRAPE
     Route: 065

REACTIONS (14)
  - Toxicity to various agents [Unknown]
  - Food interaction [Unknown]
  - Anxiety [Recovered/Resolved]
  - Dyskinesia [Recovered/Resolved]
  - Vomiting [Recovered/Resolved]
  - Blepharospasm [Recovered/Resolved]
  - Mental status changes [Recovered/Resolved]
  - Tachycardia [Recovered/Resolved]
  - Electrocardiogram QT prolonged [Recovered/Resolved]
  - Disorganised speech [Recovered/Resolved]
  - Lethargy [Recovered/Resolved]
  - Overdose [Unknown]
  - Nausea [Recovered/Resolved]
  - Eye movement disorder [Recovered/Resolved]
